FAERS Safety Report 10968724 (Version 2)
Quarter: 2015Q2

REPORT INFORMATION
  Report Type: Not Available
  Country: US (occurrence: US)
  Receive Date: 20150330
  Receipt Date: 20150409
  Transmission Date: 20150821
  Serious: No
  Sender: FDA-Public Use
  Company Number: US-LUPIN PHARMACEUTICALS INC.-E2B_00003044

PATIENT
  Sex: Male
  Weight: 82.63 kg

DRUGS (1)
  1. NIACIN EXTENDED-RELEASE TABLET USP, 500 MG [Suspect]
     Active Substance: NIACIN
     Indication: LIPOPROTEIN (A) INCREASED

REACTIONS (5)
  - Lipoprotein (a) increased [Unknown]
  - Medication residue present [Unknown]
  - Product substitution issue [Unknown]
  - Product physical issue [Unknown]
  - Drug ineffective [Unknown]
